FAERS Safety Report 7721965-6 (Version None)
Quarter: 2011Q3

REPORT INFORMATION
  Report Type: 
  Country: None (occurrence: None)
  Receive Date: 20110831
  Receipt Date: 20110829
  Transmission Date: 20111222
  Serious: Yes (Death, Hospitalization, Other)
  Sender: FDA-Public Use
  Company Number: US-PFIZER INC-2011200725

PATIENT
  Sex: Female

DRUGS (1)
  1. LIPITOR [Suspect]

REACTIONS (8)
  - CHROMATURIA [None]
  - FATIGUE [None]
  - MOANING [None]
  - FACE OEDEMA [None]
  - DEATH [None]
  - MUSCULAR WEAKNESS [None]
  - EYELID PTOSIS [None]
  - MALAISE [None]
